FAERS Safety Report 7236448-X (Version None)
Quarter: 2011Q1

REPORT INFORMATION
  Report Type: 
  Country: None (occurrence: None)
  Receive Date: 20110120
  Receipt Date: 20110111
  Transmission Date: 20110831
  Serious: Yes (Hospitalization)
  Sender: FDA-Public Use
  Company Number: US-ASTRAZENECA-2010SE54120

PATIENT
  Age: 62 Year
  Sex: Male

DRUGS (1)
  1. CRESTOR [Suspect]
     Route: 048

REACTIONS (6)
  - SCAB [None]
  - KNEE OPERATION [None]
  - DIABETES MELLITUS [None]
  - KNEE ARTHROPLASTY [None]
  - CARDIAC DISORDER [None]
  - LIMB DISCOMFORT [None]
